FAERS Safety Report 23251522 (Version 1)
Quarter: 2023Q4

REPORT INFORMATION
  Report Type: Spontaneous
  Country: US (occurrence: US)
  Receive Date: 20231201
  Receipt Date: 20231201
  Transmission Date: 20240109
  Serious: Yes (Other)
  Sender: FDA-Public Use
  Company Number: US-MYLANLABS-2023M1127582

PATIENT
  Age: 75 Year
  Sex: Female

DRUGS (14)
  1. DOXORUBICIN [Suspect]
     Active Substance: DOXORUBICIN
     Indication: Sarcoma
     Dosage: UNK, CYCLE, RECEIVED 4 CYCLES
     Route: 065
  2. DOXORUBICIN [Suspect]
     Active Substance: DOXORUBICIN
     Indication: Primitive neuroectodermal tumour
  3. TEMOZOLOMIDE [Suspect]
     Active Substance: TEMOZOLOMIDE
     Indication: Sarcoma
     Dosage: UNK, CYCLE
     Route: 065
  4. TEMOZOLOMIDE [Suspect]
     Active Substance: TEMOZOLOMIDE
     Indication: Primitive neuroectodermal tumour
  5. VINCRISTINE [Suspect]
     Active Substance: VINCRISTINE
     Indication: Sarcoma
     Dosage: UNK UNK, CYCLE, RECEIVED 4 CYCLES
     Route: 065
  6. VINCRISTINE [Suspect]
     Active Substance: VINCRISTINE
     Indication: Primitive neuroectodermal tumour
  7. CYTOXAN [Suspect]
     Active Substance: CYCLOPHOSPHAMIDE
     Indication: Sarcoma
     Dosage: UNK UNK, CYCLE, RECEIVED 4 CYCLES
     Route: 065
  8. CYTOXAN [Suspect]
     Active Substance: CYCLOPHOSPHAMIDE
     Indication: Primitive neuroectodermal tumour
  9. OLARATUMAB [Suspect]
     Active Substance: OLARATUMAB
     Indication: Sarcoma
     Dosage: UNK UNK, CYCLE; RECEIVED 4 CYCLES
     Route: 065
  10. OLARATUMAB [Suspect]
     Active Substance: OLARATUMAB
     Indication: Primitive neuroectodermal tumour
  11. IRINOTECAN [Suspect]
     Active Substance: IRINOTECAN
     Indication: Sarcoma
     Dosage: UNK UNK, CYCLE
     Route: 065
  12. IRINOTECAN [Suspect]
     Active Substance: IRINOTECAN
     Indication: Primitive neuroectodermal tumour
  13. PAZOPANIB [Suspect]
     Active Substance: PAZOPANIB
     Indication: Sarcoma
     Dosage: UNK UNK, CYCLE
     Route: 065
  14. PAZOPANIB [Suspect]
     Active Substance: PAZOPANIB
     Indication: Primitive neuroectodermal tumour

REACTIONS (2)
  - Disease progression [Unknown]
  - Drug ineffective [Unknown]
